FAERS Safety Report 6358160-1 (Version None)
Quarter: 2009Q3

REPORT INFORMATION
  Report Type: 
  Country: None (occurrence: None)
  Receive Date: 20090916
  Receipt Date: 20090911
  Transmission Date: 20100115
  Serious: Yes (Hospitalization)
  Sender: FDA-Public Use
  Company Number: US-MERCK-0909USA01485

PATIENT
  Age: 75 Year
  Sex: Female

DRUGS (6)
  1. JANUVIA [Suspect]
     Indication: DIABETES MELLITUS
     Route: 048
     Dates: start: 20060101
  2. GLIPIZIDE [Concomitant]
     Route: 065
  3. PRANDIN [Concomitant]
     Route: 065
  4. LIPITOR [Concomitant]
     Route: 065
  5. METOPROLOL [Concomitant]
     Route: 065
  6. FUROSEMIDE [Concomitant]
     Route: 065

REACTIONS (3)
  - DRUG INEFFECTIVE [None]
  - GROIN INFECTION [None]
  - VAGINAL INFLAMMATION [None]
